FAERS Safety Report 8458718-X (Version None)
Quarter: 2012Q2

REPORT INFORMATION
  Report Type: 
  Country: None (occurrence: None)
  Receive Date: 20120622
  Receipt Date: 20120612
  Transmission Date: 20120825
  Serious: Yes (Hospitalization, Other)
  Sender: FDA-Public Use
  Company Number: US-GENZYME-THYM-1002354

PATIENT
  Sex: Male
  Weight: 128.5 kg

DRUGS (244)
  1. NORVASC [Concomitant]
     Dosage: 5 MG, QD
     Route: 048
     Dates: start: 20120201, end: 20120201
  2. NOVOLOG [Concomitant]
     Dosage: 10 UNITS
     Route: 058
     Dates: start: 20110531, end: 20110531
  3. LANTUS [Concomitant]
     Dosage: 40 UNITS
     Route: 058
     Dates: start: 20111105, end: 20111107
  4. LANTUS [Concomitant]
     Dosage: 12 UNITS
     Route: 058
     Dates: start: 20110131, end: 20110131
  5. LANTUS [Concomitant]
     Dosage: 42 IU, QD
     Route: 058
     Dates: start: 20120201, end: 20120201
  6. TOPROL-XL [Concomitant]
     Dosage: 150 MG, QD
     Route: 048
     Dates: start: 20110202, end: 20110202
  7. PROGRAF [Concomitant]
     Dosage: 2 MG, BID
     Route: 048
  8. PERCOCET [Concomitant]
     Dosage: 1-2 TABLET
     Route: 048
     Dates: start: 20110531, end: 20110602
  9. PERCOCET [Concomitant]
     Dosage: 325 MG, PRN
     Route: 048
     Dates: start: 20120201, end: 20120202
  10. COLCHICINE [Concomitant]
     Dosage: 0.6 MG, TID
     Dates: start: 20110127, end: 20110128
  11. NEURONTIN [Concomitant]
     Dosage: 200 MG, TID
     Route: 048
     Dates: start: 20110129, end: 20110131
  12. VALCYTE [Concomitant]
     Dosage: 450 MG, BID
     Route: 048
     Dates: start: 20111101, end: 20111103
  13. VALCYTE [Concomitant]
     Dosage: 450 MG, QD
     Route: 048
     Dates: start: 20111104, end: 20111119
  14. NEXIUM [Concomitant]
     Indication: PRODUCT USED FOR UNKNOWN INDICATION
     Dosage: UNK
     Route: 048
  15. DELTASONE [Concomitant]
     Indication: PRODUCT USED FOR UNKNOWN INDICATION
     Dosage: 5 MG, UNK
     Route: 048
  16. MEPHYTON [Concomitant]
     Indication: PRODUCT USED FOR UNKNOWN INDICATION
     Dosage: 2.5 MG, ONCE
     Route: 048
     Dates: start: 20111118, end: 20111118
  17. DULCOLAX [Concomitant]
     Indication: PRODUCT USED FOR UNKNOWN INDICATION
     Dosage: 5 MG, ONCE
     Route: 048
     Dates: start: 20111102, end: 20111104
  18. VITAMIN D [Concomitant]
     Dosage: 1000 U, QD
     Route: 048
     Dates: start: 20110201
  19. FRAGMIN [Concomitant]
     Indication: PRODUCT USED FOR UNKNOWN INDICATION
     Dosage: 2500 UNITS
     Route: 058
     Dates: start: 20111101, end: 20111101
  20. FRAGMIN [Concomitant]
     Dosage: 10,000 UNITS
     Route: 058
     Dates: start: 20111117, end: 20111117
  21. SUBLIMAZE PRESERVATIVE FREE [Concomitant]
     Dosage: 25-100 MCG
     Route: 042
     Dates: start: 20111107, end: 20111107
  22. DILAUDID [Concomitant]
     Dosage: 1 MG, PRN
     Route: 042
     Dates: start: 20111111, end: 20111112
  23. DILAUDID [Concomitant]
     Dosage: 1-2 MG
     Route: 042
     Dates: start: 20111114, end: 20111114
  24. HUMALOG [Concomitant]
     Dosage: 15 UNITS
     Route: 058
     Dates: start: 20111107, end: 20111114
  25. SODIUM CHLORIDE [Concomitant]
     Dosage: 30 ML/HR, CONTINUOUS
     Route: 042
     Dates: start: 20110124, end: 20110124
  26. SODIUM CHLORIDE [Concomitant]
     Dosage: 100 ML/HR, CONTINUOUS
     Route: 042
     Dates: start: 20111107, end: 20111111
  27. SODIUM CHLORIDE [Concomitant]
     Dosage: 75 ML/HR CONTINOUS
     Route: 042
     Dates: start: 20120201, end: 20120201
  28. ZOFRAN [Concomitant]
     Dosage: 4 MG, PRN
     Route: 042
     Dates: start: 20120201, end: 20120202
  29. PHENERGAN [Concomitant]
     Indication: NAUSEA
     Dosage: 12.5 MG, Q4HR
     Route: 042
     Dates: start: 20110124, end: 20110202
  30. DAPSONE [Concomitant]
     Dosage: 50 MG, PRN
     Route: 048
     Dates: start: 20120201, end: 20120201
  31. PROTONIX [Concomitant]
     Indication: PRODUCT USED FOR UNKNOWN INDICATION
     Dosage: 40 MG, QD
     Route: 048
     Dates: start: 20120201, end: 20120202
  32. THROMBIN [Concomitant]
     Indication: PRODUCT USED FOR UNKNOWN INDICATION
     Dosage: 5000 U, UI INTRA-OP
     Route: 050
  33. NOVOLOG [Concomitant]
     Indication: PRODUCT USED FOR UNKNOWN INDICATION
     Route: 058
  34. LANTUS [Concomitant]
     Dosage: 40 UNITS
     Route: 058
     Dates: start: 20111102, end: 20111102
  35. LANTUS [Concomitant]
     Dosage: 50 UNITS
     Route: 058
     Dates: start: 20111101, end: 20111101
  36. TOPROL-XL [Concomitant]
     Dosage: 50 MG, ONCE
     Route: 048
     Dates: start: 20111105, end: 20111105
  37. TOPROL-XL [Concomitant]
     Dosage: 200 MG, QD
     Route: 048
     Dates: start: 20111118, end: 20111119
  38. PROGRAF [Concomitant]
     Dosage: 4 MG, QD
     Route: 048
     Dates: start: 20110130, end: 20110201
  39. PROGRAF [Concomitant]
     Dosage: 1 MG, QD
     Route: 048
     Dates: start: 20110601, end: 20110602
  40. CATAPRES [Concomitant]
     Dosage: 0.1 MG, Q3HR
     Route: 048
     Dates: start: 20110124, end: 20110202
  41. NEURONTIN [Concomitant]
     Indication: PRODUCT USED FOR UNKNOWN INDICATION
     Dosage: 200 MG, TID
     Route: 048
     Dates: start: 20110531, end: 20110602
  42. VALCYTE [Concomitant]
     Dosage: 450 MG, QD
     Route: 048
     Dates: start: 20120201, end: 20120202
  43. APRESOLINE [Concomitant]
     Dosage: 5 MG, ONCE
     Route: 042
     Dates: start: 20111110, end: 20111110
  44. HEPARIN [Concomitant]
     Dosage: 500-5,000 UNITS
     Route: 042
     Dates: start: 20111107, end: 20111107
  45. LIDOCAINE [Concomitant]
     Dosage: 1-20 ML
     Route: 065
     Dates: start: 20111104, end: 20111104
  46. MARCAINE [Concomitant]
     Dosage: 1-30 ML, INTRA-OP
     Route: 065
     Dates: start: 20120201, end: 20120201
  47. VITAMIN D [Concomitant]
     Indication: PRODUCT USED FOR UNKNOWN INDICATION
     Dosage: 1 TAB,
     Route: 048
     Dates: start: 20110125
  48. VITAMIN D [Concomitant]
     Dosage: 1000 UNITS
     Route: 048
     Dates: start: 20111102, end: 20111119
  49. VITAMIN D [Concomitant]
     Dosage: 1 TAB, 1000 UNITS
     Route: 048
  50. DILAUDID [Concomitant]
     Dosage: 2 MG, PRN
     Route: 042
     Dates: start: 20111031, end: 20111102
  51. DILAUDID [Concomitant]
     Dosage: 1 MG, PRN
     Route: 042
     Dates: start: 20111114, end: 20111115
  52. HUMALOG [Concomitant]
     Dosage: 1-18 UNITS
     Route: 058
     Dates: start: 20110601, end: 20110602
  53. HUMALOG [Concomitant]
     Dosage: 10-15 UNITS
     Route: 058
     Dates: start: 20110601, end: 20110602
  54. HUMALOG [Concomitant]
     Dosage: 1-16 UNITS
     Route: 058
     Dates: start: 20111102, end: 20111102
  55. HUMALOG [Concomitant]
     Dosage: 10 UNITS
     Route: 058
     Dates: start: 20111108, end: 20111114
  56. HUMALOG [Concomitant]
     Dosage: 15 UNITS
     Route: 058
     Dates: start: 20111114, end: 20111119
  57. HUMALOG [Concomitant]
     Dosage: 2-8 UNITS
     Route: 058
     Dates: start: 20110124, end: 20110128
  58. COUMADIN [Concomitant]
     Dosage: 5 MG, QD
     Route: 048
     Dates: start: 20111117, end: 20111119
  59. COUMADIN [Concomitant]
     Dosage: 3 MG, QD
     Route: 048
     Dates: start: 20120201, end: 20120202
  60. PRAVACHOL [Concomitant]
     Dosage: 20 MG, QD
     Route: 048
     Dates: start: 20111118
  61. SODIUM CHLORIDE [Concomitant]
     Dosage: 100 ML/HR, CONTINUOUS
     Route: 042
     Dates: start: 20111101, end: 20111105
  62. SODIUM CHLORIDE [Concomitant]
     Dosage: 80 ML/HR, CONTINUOUS
     Route: 042
     Dates: start: 20110201, end: 20110202
  63. SODIUM CHLORIDE [Concomitant]
     Dosage: 100 ML/HR, CONTINUOUS
     Route: 042
     Dates: start: 20111107, end: 20111108
  64. SODIUM CHLORIDE [Concomitant]
     Dosage: UNK
     Route: 050
     Dates: start: 20120201, end: 20120201
  65. SODIUM CHLORIDE [Concomitant]
     Dosage: 125 ML/HR, CONTINOUS
     Route: 042
     Dates: start: 20120201, end: 20120201
  66. OMEPRAZOLE [Concomitant]
     Dosage: 10 MG, QD
     Route: 048
     Dates: start: 20120201, end: 20120201
  67. ZOCOR [Concomitant]
     Indication: PRODUCT USED FOR UNKNOWN INDICATION
     Dosage: 5 MG, QD
     Route: 048
     Dates: start: 20120201, end: 20120202
  68. NORVASC [Concomitant]
     Dosage: 10 MG, QD
     Route: 048
     Dates: start: 20110125, end: 20110202
  69. LANTUS [Concomitant]
     Dosage: 20 UNITS
     Route: 058
     Dates: start: 20110125, end: 20110128
  70. LANTUS [Concomitant]
     Dosage: 20 UNITS
     Route: 058
     Dates: start: 20110104, end: 20111105
  71. LANTUS [Concomitant]
     Dosage: 44 UNITS
     Route: 058
     Dates: start: 20111113, end: 20111114
  72. NEURONTIN [Concomitant]
     Dosage: 200 MG, BID
     Route: 048
  73. CYANOCOBALAMIN [Concomitant]
     Dosage: 1000 MCG, QD
     Route: 030
     Dates: start: 20120201, end: 20120202
  74. CELLCEPT [Concomitant]
     Indication: PRODUCT USED FOR UNKNOWN INDICATION
     Dosage: 1000 MG, BID
     Route: 048
  75. APRESOLINE [Concomitant]
     Dosage: 50 MG, TID
     Route: 048
     Dates: start: 20110131, end: 20110202
  76. FLUZONE [Concomitant]
     Dosage: 0.5 ML, ONCE
     Route: 030
     Dates: start: 20111119, end: 20111120
  77. HEPARIN [Concomitant]
     Dosage: 23.1 ML/HR, CONTINUOUS
     Route: 042
     Dates: start: 20111101, end: 20111101
  78. LOPRESSOR [Concomitant]
     Indication: PRODUCT USED FOR UNKNOWN INDICATION
     Dosage: 25 MG, QID
     Route: 048
     Dates: start: 20110124, end: 20110127
  79. VITAMIN D [Concomitant]
     Dosage: 1 TAB
     Route: 048
     Dates: start: 20120201, end: 20120202
  80. DEXTROSE [Concomitant]
     Indication: BLOOD GLUCOSE DECREASED
     Dosage: 25 ML, PRN
     Route: 042
     Dates: start: 20110124, end: 20110202
  81. SUBLIMAZE PRESERVATIVE FREE [Concomitant]
     Dosage: 25-100 MCG
     Route: 042
     Dates: start: 20111117, end: 20111117
  82. DILAUDID [Concomitant]
     Indication: PRODUCT USED FOR UNKNOWN INDICATION
     Dosage: UNK
     Route: 065
     Dates: start: 20111031, end: 20111101
  83. DILAUDID [Concomitant]
     Dosage: 1-3 MG
     Route: 042
     Dates: start: 20111112, end: 20111113
  84. HUMALOG [Concomitant]
     Dosage: 8 UNITS
     Route: 058
     Dates: start: 20110124, end: 20110128
  85. HUMALOG [Concomitant]
     Dosage: 20 UNITS
     Route: 058
     Dates: start: 20111101, end: 20111101
  86. HUMALOG [Concomitant]
     Dosage: 10 IU, TID WITH MEALS
     Route: 058
     Dates: start: 20120201, end: 20120202
  87. COUMADIN [Concomitant]
     Indication: PRODUCT USED FOR UNKNOWN INDICATION
     Dosage: 5 MG, QD
     Route: 048
     Dates: start: 20111110, end: 20111112
  88. COUMADIN [Concomitant]
     Dosage: 10 MG, QD
     Route: 048
     Dates: start: 20111112, end: 20111114
  89. PRAVACHOL [Concomitant]
     Indication: PRODUCT USED FOR UNKNOWN INDICATION
     Dosage: 20 MG, QD
     Route: 048
     Dates: start: 20111101
  90. SODIUM CHLORIDE [Concomitant]
     Dosage: 1000 ML, INTRARECTAL
     Dates: start: 20111110, end: 20111117
  91. OMEPRAZOLE [Concomitant]
     Dosage: 20 MG, QD
     Route: 048
  92. DEXTROSE 50% [Concomitant]
     Indication: BLOOD GLUCOSE DECREASED
     Dosage: 25 ML, ONCE
     Route: 042
     Dates: start: 20120201, end: 20120202
  93. DEMEROL [Concomitant]
     Indication: PAIN
     Dosage: 12.5 MG, PRN
     Route: 042
     Dates: start: 20120201, end: 20120201
  94. MORPHINE [Concomitant]
     Indication: PAIN
     Dosage: 2 MG, PRN
     Route: 042
     Dates: start: 20120201, end: 20120201
  95. NORVASC [Concomitant]
     Dosage: 5 MG, ONCE
     Route: 048
     Dates: start: 20111110, end: 20111110
  96. TOPROL-XL [Concomitant]
     Dosage: 50 MG, ONCE
     Route: 048
     Dates: start: 20111115, end: 20111115
  97. TOPROL-XL [Concomitant]
     Dosage: 100 MG, QD
     Route: 048
     Dates: start: 20111108, end: 20111112
  98. TOPROL-XL [Concomitant]
     Dosage: 50 MG, QD
     Route: 048
     Dates: start: 20120201, end: 20120202
  99. PROGRAF [Concomitant]
     Dosage: 1 MG, BID
     Route: 048
     Dates: start: 20111102, end: 20111110
  100. CATAPRES [Concomitant]
     Indication: HYPERTENSION
     Dosage: 0.2 MG, UNK
     Route: 048
  101. PERCOCET [Concomitant]
     Indication: PAIN
     Dosage: 1-2 TABLETS
     Route: 048
     Dates: start: 20110124, end: 20110202
  102. VALCYTE [Concomitant]
     Indication: PRODUCT USED FOR UNKNOWN INDICATION
     Dosage: 225 MG, QD
     Route: 048
  103. DELTASONE [Concomitant]
     Dosage: 10 MG, QD
     Route: 048
     Dates: start: 20120201, end: 20120202
  104. BACTRIM [Concomitant]
     Indication: PRODUCT USED FOR UNKNOWN INDICATION
     Route: 048
  105. HEPARIN [Concomitant]
     Dosage: 500-6,500 UNITS
     Route: 040
     Dates: start: 20111103, end: 20111110
  106. HEPARIN [Concomitant]
     Dosage: UNK
  107. LIDOCAINE [Concomitant]
     Dosage: 1-20 ML, ABSCESS SITE
     Route: 065
     Dates: start: 20111117, end: 20111117
  108. MEPHYTON [Concomitant]
     Dosage: 10 MG/KG, ONCE
     Route: 048
     Dates: start: 20120201, end: 20120201
  109. FRAGMIN [Concomitant]
     Dosage: 10,000 UNITS
     Route: 058
     Dates: start: 20111117, end: 20111119
  110. DILAUDID [Concomitant]
     Dosage: 1 MG, PRN
     Route: 042
     Dates: start: 20111101, end: 20111103
  111. DILAUDID [Concomitant]
     Dosage: 2 MG, PRN
     Route: 042
     Dates: start: 20111103, end: 20111108
  112. HUMALOG [Concomitant]
     Indication: PRODUCT USED FOR UNKNOWN INDICATION
     Dosage: 3 UNITS
     Route: 058
     Dates: start: 20110128, end: 20110131
  113. HUMALOG [Concomitant]
     Dosage: 1-9 UNITS
     Route: 058
     Dates: start: 20110128, end: 20110131
  114. COUMADIN [Concomitant]
     Dosage: 2 MG, QD (MWF)
     Dates: start: 20120202
  115. PRAVACHOL [Concomitant]
     Dosage: 20 MG, QD
     Route: 048
  116. SODIUM CHLORIDE [Concomitant]
     Indication: PRODUCT USED FOR UNKNOWN INDICATION
     Dosage: 75 ML/HR, CONTINUOUS
     Route: 042
     Dates: start: 20110531, end: 20110531
  117. SODIUM CHLORIDE [Concomitant]
     Dosage: 1000 ML, UNK
     Route: 042
     Dates: start: 20110531, end: 20110602
  118. SODIUM CHLORIDE [Concomitant]
     Dosage: 125 ML/HR, CONTINUOUS
     Route: 042
     Dates: start: 20111118, end: 20111119
  119. SODIUM CHLORIDE [Concomitant]
     Dosage: 1000 ML,INTRA OP
  120. VIBRA-TABS 50 [Concomitant]
     Dosage: 100 MG, BID
     Route: 048
     Dates: start: 20120201, end: 20120202
  121. NORVASC [Concomitant]
     Indication: PRODUCT USED FOR UNKNOWN INDICATION
     Dosage: 5 MG, BID
     Route: 048
     Dates: start: 20110124, end: 20110125
  122. LANTUS [Concomitant]
     Dosage: 30 UNITS
     Route: 058
     Dates: start: 20110201, end: 20110202
  123. LANTUS [Concomitant]
     Dosage: 40 UNITS
     Route: 058
     Dates: start: 20111108, end: 20111112
  124. LANTUS [Concomitant]
     Dosage: 44 UNITS
     Route: 058
     Dates: start: 20111115, end: 20111119
  125. LANTUS [Concomitant]
     Dosage: 38 IU, QD
     Route: 058
     Dates: start: 20120201, end: 20120202
  126. PROGRAF [Concomitant]
     Indication: PRODUCT USED FOR UNKNOWN INDICATION
     Dosage: 5 MG, BID
     Route: 048
     Dates: start: 20110125, end: 20110125
  127. PROGRAF [Concomitant]
     Dosage: 3 MG, QD
     Route: 048
     Dates: start: 20110201, end: 20110202
  128. PROGRAF [Concomitant]
     Dosage: 1 MG, BID
     Route: 048
     Dates: start: 20111101, end: 20111102
  129. PROGRAF [Concomitant]
     Dosage: 3 MG, QD
     Dates: start: 20110126, end: 20110130
  130. PROGRAF [Concomitant]
     Dosage: 1 MG, BID
     Route: 048
     Dates: start: 20120201, end: 20120202
  131. PERCOCET [Concomitant]
     Dosage: 325 MG, PRN
     Route: 048
     Dates: start: 20120202
  132. COLCHICINE [Concomitant]
     Dosage: 0.6 MG, ONCE
     Route: 048
     Dates: start: 20110128, end: 20110128
  133. NEURONTIN [Concomitant]
     Dosage: 200 MG, BID
     Route: 048
     Dates: start: 20110201, end: 20110202
  134. NEURONTIN [Concomitant]
     Dosage: 200 MG, TID
     Route: 048
     Dates: start: 20120201, end: 20120202
  135. VALCYTE [Concomitant]
     Dosage: 225 MG, 3X/W
     Route: 048
     Dates: start: 20110126, end: 20110202
  136. CYANOCOBALAMIN [Concomitant]
     Indication: PRODUCT USED FOR UNKNOWN INDICATION
     Dosage: 1000 MCG, EVERY 30 DAYS
     Route: 030
     Dates: start: 20111101, end: 20111119
  137. CYANOCOBALAMIN [Concomitant]
     Dosage: 1 ML, QD
     Route: 030
  138. AMBIEN [Concomitant]
     Indication: SLEEP DISORDER
     Route: 048
  139. FLUZONE [Concomitant]
     Indication: PRODUCT USED FOR UNKNOWN INDICATION
     Dosage: 0.5 ML, ONCE
     Route: 030
     Dates: start: 20111119, end: 20111119
  140. HEPARIN [Concomitant]
     Dosage: 23.1 ML/HR
     Route: 042
     Dates: start: 20111101, end: 20111110
  141. LIDOCAINE [Concomitant]
     Indication: LOCAL ANAESTHESIA
     Dosage: 1-20 ML
     Route: 065
     Dates: start: 20110531, end: 20110531
  142. LIDOCAINE [Concomitant]
     Dosage: 1-20 ML
     Route: 065
     Dates: start: 20111107, end: 20111107
  143. MARCAINE [Concomitant]
     Indication: PRODUCT USED FOR UNKNOWN INDICATION
     Dosage: 1-30 ML
     Route: 065
     Dates: start: 20111104, end: 20111104
  144. SUBLIMAZE PRESERVATIVE FREE [Concomitant]
     Indication: PAIN
     Dosage: 25-100 MCG
     Route: 042
     Dates: start: 20110531, end: 20110531
  145. DILAUDID [Concomitant]
     Dosage: 1 MG, PRN
     Route: 042
     Dates: start: 20120201, end: 20120202
  146. HUMALOG [Concomitant]
     Dosage: 2-8 UNITS
     Route: 058
     Dates: start: 20110128, end: 20110131
  147. HUMALOG [Concomitant]
     Dosage: 2-8 UNITS AT BEDTIME
     Route: 058
     Dates: start: 20120201, end: 20120202
  148. VERSED [Concomitant]
     Indication: PRODUCT USED FOR UNKNOWN INDICATION
     Dosage: 0.25-2 MG
     Route: 042
     Dates: start: 20110531, end: 20110531
  149. VERSED [Concomitant]
     Dosage: 0.25-2 MG
     Route: 042
     Dates: start: 20111107, end: 20111107
  150. VERSED [Concomitant]
     Dosage: 0.25-2 MG
     Route: 042
     Dates: start: 20111117, end: 20111117
  151. VERSED [Concomitant]
     Dosage: 0.25-2 MG
     Route: 042
     Dates: start: 20111104, end: 20111104
  152. SODIUM CHLORIDE [Concomitant]
     Dosage: 75 ML/HR, CONTINUOUS
     Route: 042
     Dates: start: 20110531, end: 20110601
  153. SODIUM CHLORIDE [Concomitant]
     Dosage: 100 ML/HR, CONTINUOUS
     Route: 042
     Dates: start: 20110601, end: 20110602
  154. SODIUM CHLORIDE [Concomitant]
     Dosage: 200 ML/HR, CONTINUOUS
     Dates: start: 20111107, end: 20111107
  155. ZOFRAN [Concomitant]
     Indication: NAUSEA
     Dosage: 4 MG, QID
     Route: 042
     Dates: start: 20111106, end: 20111119
  156. OMEPRAZOLE [Concomitant]
     Indication: PRODUCT USED FOR UNKNOWN INDICATION
     Dosage: 40 MG, QD
     Route: 048
  157. DAPSONE [Concomitant]
     Indication: PRODUCT USED FOR UNKNOWN INDICATION
     Dosage: 25 MG, UNK
     Route: 048
  158. DEXTROSE 50% [Concomitant]
     Dosage: 50 ML, ONCE
     Route: 042
     Dates: start: 20120201, end: 20120202
  159. CUBICIN [Concomitant]
     Indication: PRODUCT USED FOR UNKNOWN INDICATION
     Dosage: 650 MG, QD
     Route: 042
  160. NORVASC [Concomitant]
     Dosage: 5 MG, QD
     Route: 048
     Dates: start: 20111108, end: 20111119
  161. COLCHICINE [Concomitant]
     Indication: PRODUCT USED FOR UNKNOWN INDICATION
     Dosage: 0.2 MG/DAY, UNK
     Route: 048
  162. FEBUXOSTAT [Concomitant]
     Indication: PRODUCT USED FOR UNKNOWN INDICATION
     Dosage: 40 MG, QD
     Route: 048
     Dates: start: 20120201, end: 20120202
  163. ULTRAM [Concomitant]
     Indication: PRODUCT USED FOR UNKNOWN INDICATION
     Dosage: 100 MG, PRN
     Route: 048
  164. APRESOLINE [Concomitant]
     Indication: PRODUCT USED FOR UNKNOWN INDICATION
     Dosage: 10 MG, ONCE
     Route: 042
     Dates: start: 20111107, end: 20111107
  165. LOPRESSOR [Concomitant]
     Dosage: 25 MG, ONCE
     Route: 048
     Dates: start: 20111101, end: 20111101
  166. LOPRESSOR [Concomitant]
     Dosage: 50 MG, QD
     Route: 048
     Dates: start: 20111101, end: 20111101
  167. VITAMIN D [Concomitant]
     Dosage: 400 UNITS
     Route: 048
     Dates: start: 20111101, end: 20111101
  168. DEXTROSE [Concomitant]
     Dosage: 25 ML, PRN
     Route: 042
     Dates: start: 20111101, end: 20111110
  169. HUMALOG [Concomitant]
     Dosage: 10 UNITS
     Route: 058
     Dates: start: 20111107, end: 20111119
  170. HUMALOG [Concomitant]
     Dosage: 1-13 UNITS
     Route: 058
     Dates: start: 20111102, end: 20111119
  171. HUMALOG [Concomitant]
     Dosage: 10 UNITS
     Route: 058
     Dates: start: 20111114, end: 20111119
  172. HUMALOG [Concomitant]
     Dosage: 2-10 UNITS
     Route: 058
     Dates: start: 20111102, end: 20111119
  173. HUMALOG [Concomitant]
     Dosage: 3-15 UNITS
     Route: 058
     Dates: start: 20111102, end: 20111107
  174. HUMALOG [Concomitant]
     Dosage: 3-15 UNITS
     Route: 058
     Dates: start: 20111103, end: 20111107
  175. COUMADIN [Concomitant]
  176. CIPROFLOXACIN HYDROCHLORIDE [Concomitant]
     Dosage: 500 MG, BID
     Route: 048
     Dates: start: 20120202, end: 20120202
  177. VIBRA-TABS 50 [Concomitant]
     Indication: PRODUCT USED FOR UNKNOWN INDICATION
     Dosage: UNK
     Route: 048
     Dates: start: 20120124, end: 20120208
  178. SODIUM BICARBONATE [Concomitant]
     Indication: PRODUCT USED FOR UNKNOWN INDICATION
     Dosage: 1300 MG, TID
     Route: 048
     Dates: start: 20120201, end: 20120202
  179. THYMOGLOBULIN [Suspect]
     Indication: KIDNEY TRANSPLANT REJECTION
     Dosage: 175 MG, UNK
     Route: 042
     Dates: start: 20110114, end: 20110127
  180. LANTUS [Concomitant]
     Indication: PRODUCT USED FOR UNKNOWN INDICATION
     Dosage: 3 ML, UNK
     Route: 059
  181. LANTUS [Concomitant]
     Dosage: 50 UNITS
     Route: 058
     Dates: start: 20110601, end: 20110602
  182. LANTUS [Concomitant]
  183. TOPROL-XL [Concomitant]
     Indication: PRODUCT USED FOR UNKNOWN INDICATION
     Dosage: 150 MG, QD
     Route: 048
  184. TOPROL-XL [Concomitant]
     Dosage: 50 MG, QD
     Route: 048
     Dates: start: 20110531, end: 20110602
  185. PROGRAF [Concomitant]
     Dosage: 1 MG, QD
     Route: 048
  186. PROGRAF [Concomitant]
     Dosage: 1.5 MG, QD
     Route: 048
     Dates: start: 20110602, end: 20110602
  187. PROGRAF [Concomitant]
     Dosage: 1.5 MG, BID
     Route: 048
     Dates: start: 20110531, end: 20110601
  188. CATAPRES [Concomitant]
     Dosage: 0.1 MG, PRN
     Route: 048
     Dates: start: 20111110, end: 20111119
  189. CATAPRES [Concomitant]
     Dosage: UNK
  190. PERCOCET [Concomitant]
     Dosage: 325 MG, 1-2 TABS BY MOUTH AS NEEDED
     Route: 048
     Dates: start: 20111118
  191. COLCHICINE [Concomitant]
     Dosage: 0.6 MG, EVERY 48 HOURS
     Route: 048
     Dates: start: 20110531, end: 20110602
  192. COLCHICINE [Concomitant]
     Dosage: 0.6 MG, BID
     Route: 048
     Dates: start: 20110128, end: 20110201
  193. MYCOSTATIN [Concomitant]
     Indication: PRODUCT USED FOR UNKNOWN INDICATION
     Route: 048
  194. NEXIUM [Concomitant]
     Dosage: 20 MG, QD
     Route: 048
     Dates: start: 20110531, end: 20110602
  195. DELTASONE [Concomitant]
     Dosage: 5 MG, QD
     Route: 048
     Dates: start: 20110531, end: 20110602
  196. DELTASONE [Concomitant]
     Dosage: 10 MG, QD
     Route: 048
     Dates: start: 20111101, end: 20111119
  197. HEPARIN [Concomitant]
     Dosage: 5,000 UNITS
     Route: 058
     Dates: start: 20111101, end: 20111101
  198. VITAMIN D [Concomitant]
     Dosage: 1 TABLET, 1000 UNITS
     Route: 048
     Dates: start: 20110531, end: 20110602
  199. DEXTROSE [Concomitant]
     Dosage: 50 ML, PRN
     Route: 042
     Dates: start: 20111101, end: 20111119
  200. DILAUDID [Concomitant]
     Indication: PAIN
     Dosage: 0.2 MG, UNK
     Route: 042
     Dates: start: 20111104, end: 20111104
  201. DILAUDID [Concomitant]
     Dosage: 1-2 MG
     Route: 042
     Dates: start: 20111113, end: 20111114
  202. HUMALOG [Concomitant]
     Dosage: 10 UNITS
     Route: 058
     Dates: start: 20110531, end: 20110601
  203. HUMALOG [Concomitant]
     Dosage: 6 UNITS
     Route: 058
     Dates: start: 20110128, end: 20110130
  204. HUMALOG [Concomitant]
     Dosage: 10 UNITS
     Route: 058
     Dates: start: 20110131, end: 20110202
  205. HUMALOG [Concomitant]
     Dosage: 4 UNITS
     Route: 058
     Dates: start: 20110124, end: 20110128
  206. HUMALOG [Concomitant]
     Dosage: 1-9 UNITS
     Route: 058
     Dates: start: 20110124, end: 20110128
  207. ZYVOX [Concomitant]
     Indication: PRODUCT USED FOR UNKNOWN INDICATION
     Dosage: 600 MG, BID
     Route: 048
     Dates: start: 20111108, end: 20111119
  208. BENEPROTEIN [Concomitant]
     Indication: PRODUCT USED FOR UNKNOWN INDICATION
     Dosage: 1 PACKET
     Route: 048
     Dates: start: 20111105, end: 20111119
  209. SODIUM CHLORIDE [Concomitant]
     Dosage: 42 ML/HR, CONTINUOUS
     Route: 042
     Dates: start: 20111110, end: 20111118
  210. CIPROFLOXACIN HYDROCHLORIDE [Concomitant]
     Indication: URINARY TRACT INFECTION
     Dosage: 500 MG, BID
     Route: 048
     Dates: start: 20120202, end: 20120209
  211. ACETAMINOPHEN [Concomitant]
     Indication: PYREXIA
     Dosage: 650 MG, Q4HR
     Route: 048
     Dates: start: 20110124, end: 20110202
  212. ATROPINE [Concomitant]
     Indication: BRADYCARDIA
     Dosage: 0.4 MG, PRN
     Route: 042
     Dates: start: 20120201, end: 20120201
  213. RITUXIMAB [Suspect]
     Indication: PRODUCT USED FOR UNKNOWN INDICATION
     Dosage: 908 MG, ONCE
     Route: 042
     Dates: start: 20110115, end: 20110115
  214. NORVASC [Concomitant]
  215. LANTUS [Concomitant]
     Dosage: 32 UNITS
     Route: 058
     Dates: start: 20111103, end: 20111103
  216. TOPROL-XL [Concomitant]
     Dosage: 150 MG, QD
     Route: 048
     Dates: start: 20111113, end: 20111115
  217. TOPROL-XL [Concomitant]
     Dosage: 40 MG, QD
     Route: 048
  218. TOPROL-XL [Concomitant]
     Dosage: 200 MG, QD
     Route: 048
     Dates: start: 20120201, end: 20120201
  219. PROGRAF [Concomitant]
     Dosage: 4 MG, BID
     Route: 048
     Dates: start: 20111102, end: 20111102
  220. CATAPRES [Concomitant]
     Dosage: 0.2 MG, BID
     Route: 048
     Dates: start: 20110124, end: 20110202
  221. PERCOCET [Concomitant]
     Dosage: 5-325 MG, 1-2 TABLET
     Route: 048
     Dates: start: 20111031
  222. DELTASONE [Concomitant]
     Dosage: 5 MG, QD
     Route: 048
     Dates: start: 20110125, end: 20110202
  223. APRESOLINE [Concomitant]
     Dosage: 25 MG, TID
     Route: 048
     Dates: start: 20110129, end: 20110131
  224. HEPARIN [Concomitant]
     Indication: PRODUCT USED FOR UNKNOWN INDICATION
     Dosage: 80 UNITS/KG
     Route: 042
     Dates: start: 20111101, end: 20111101
  225. HEPARIN [Concomitant]
     Dosage: 23.1 ML/HR, CONTINUOUS
     Route: 042
     Dates: start: 20111110, end: 20111115
  226. LOPRESSOR [Concomitant]
     Dosage: 75 MG, BID
     Route: 048
     Dates: start: 20110129, end: 20110202
  227. POLYSPORIN OINTMENT [Concomitant]
     Indication: PRODUCT USED FOR UNKNOWN INDICATION
     Dosage: UNK
     Route: 061
     Dates: start: 20111104, end: 20111104
  228. MARCAINE [Concomitant]
     Dosage: 1-30 ML
     Route: 065
     Dates: start: 20111110, end: 20111110
  229. DEXTROSE [Concomitant]
     Dosage: 25 ML, PRN
     Route: 042
     Dates: start: 20110601, end: 20110602
  230. DILAUDID [Concomitant]
     Dosage: 1-5 MG
     Route: 042
     Dates: start: 20111104, end: 20111104
  231. HUMALOG [Concomitant]
     Dosage: 7 UNITS
     Route: 058
     Dates: start: 20110130, end: 20110131
  232. HUMALOG [Concomitant]
     Dosage: 4-20 UNITS
     Route: 058
     Dates: start: 20111101, end: 20111102
  233. HUMALOG [Concomitant]
     Dosage: 5 UNITS
     Route: 058
     Dates: start: 20110131, end: 20110202
  234. HUMALOG [Concomitant]
     Dosage: 2-8 UNITS
     Route: 058
     Dates: start: 20110131, end: 20110202
  235. HUMALOG [Concomitant]
     Dosage: 1-9 UNITS
     Route: 058
     Dates: start: 20111101, end: 20111101
  236. HUMALOG [Concomitant]
     Dosage: 3-15 UNITS
     Route: 058
     Dates: start: 20111101, end: 20111102
  237. HUMALOG [Concomitant]
     Dosage: 1-12 UNITS
     Route: 058
     Dates: start: 20110131, end: 20110202
  238. HUMALOG [Concomitant]
     Dosage: 10 U/ML, UNK
     Route: 058
  239. MILK OF MAGNESIA TAB [Concomitant]
     Indication: CONSTIPATION
     Dosage: 30 ML, PRN
     Route: 048
     Dates: start: 20111102, end: 20111104
  240. COUMADIN [Concomitant]
     Dosage: 3 MG, 4X/W
     Route: 048
     Dates: start: 20120202
  241. SODIUM CHLORIDE [Concomitant]
     Dosage: 50 ML/HR, CONTINUOUS
     Route: 042
     Dates: start: 20111105, end: 20111106
  242. SODIUM CHLORIDE [Concomitant]
     Dosage: 100 ML/HR, CONTINUOUS
     Route: 042
     Dates: start: 20111114, end: 20111118
  243. BENADRYL [Concomitant]
     Indication: PRURITUS
     Dosage: 12.5 MG, QID
     Route: 042
     Dates: start: 20110124, end: 20110202
  244. BENADRYL [Concomitant]
     Dosage: 25 MG, QID, TABLET
     Route: 048
     Dates: start: 20110131, end: 20110202

REACTIONS (8)
  - POST PROCEDURAL HAEMORRHAGE [None]
  - BLOOD CREATININE INCREASED [None]
  - EXOSTOSIS [None]
  - MUSCULAR WEAKNESS [None]
  - ABSCESS [None]
  - INTERNATIONAL NORMALISED RATIO INCREASED [None]
  - SKIN ULCER [None]
  - LOCALISED INFECTION [None]
